FAERS Safety Report 12718261 (Version 2)
Quarter: 2016Q4

REPORT INFORMATION
  Report Type: Spontaneous
  Country: JP (occurrence: JP)
  Receive Date: 20160906
  Receipt Date: 20161215
  Transmission Date: 20170207
  Serious: Yes (Death)
  Sender: FDA-Public Use
  Company Number: JP-ABBVIE-16P-087-1717777-00

PATIENT
  Age: 61 Year
  Sex: Male

DRUGS (60)
  1. NAVELBINE [Suspect]
     Active Substance: VINORELBINE TARTRATE
     Dosage: UNK
     Route: 042
  2. 5-FU [Suspect]
     Active Substance: FLUOROURACIL
     Dosage: UNK
     Route: 041
  3. RANDA [Suspect]
     Active Substance: CISPLATIN
     Dosage: UNK
     Route: 041
  4. TAXOTERE [Suspect]
     Active Substance: DOCETAXEL
     Dosage: UNK
     Route: 041
  5. TAXOL [Suspect]
     Active Substance: PACLITAXEL
     Indication: ADENOCARCINOMA
     Dosage: UNK
     Route: 041
     Dates: start: 200601
  6. TAXOL [Suspect]
     Active Substance: PACLITAXEL
     Dosage: UNK
     Route: 041
  7. TAXOL [Suspect]
     Active Substance: PACLITAXEL
     Dosage: UNK
     Route: 041
  8. MITOMYCIN. [Suspect]
     Active Substance: MITOMYCIN
     Indication: ADENOCARCINOMA
     Dosage: UNK
     Route: 042
     Dates: start: 200711
  9. CASODEX [Suspect]
     Active Substance: BICALUTAMIDE
     Indication: ADENOCARCINOMA
     Dosage: UNK
     Route: 048
     Dates: start: 200901
  10. NAVELBINE [Suspect]
     Active Substance: VINORELBINE TARTRATE
     Indication: ADENOCARCINOMA
     Dosage: UNK
     Route: 042
     Dates: start: 200705
  11. NAVELBINE [Suspect]
     Active Substance: VINORELBINE TARTRATE
     Dosage: UNK
     Route: 042
  12. RANDA [Suspect]
     Active Substance: CISPLATIN
     Dosage: UNK
     Route: 041
  13. TAXOL [Suspect]
     Active Substance: PACLITAXEL
     Dosage: UNK
     Route: 041
  14. MITOMYCIN. [Suspect]
     Active Substance: MITOMYCIN
     Dosage: UNK
     Route: 042
  15. NAVELBINE [Suspect]
     Active Substance: VINORELBINE TARTRATE
     Dosage: UNK
     Route: 042
  16. NAVELBINE [Suspect]
     Active Substance: VINORELBINE TARTRATE
     Dosage: UNK
     Route: 042
  17. 5-FU [Suspect]
     Active Substance: FLUOROURACIL
     Dosage: UNK
     Route: 041
  18. 5-FU [Suspect]
     Active Substance: FLUOROURACIL
     Dosage: UNK
     Route: 041
  19. RANDA [Suspect]
     Active Substance: CISPLATIN
     Indication: ADENOCARCINOMA
     Dosage: UNK
     Route: 041
     Dates: start: 200403
  20. TAXOTERE [Suspect]
     Active Substance: DOCETAXEL
     Dosage: UNK
     Route: 041
  21. TAXOTERE [Suspect]
     Active Substance: DOCETAXEL
     Dosage: UNK
     Route: 041
  22. METHOTREXATE. [Suspect]
     Active Substance: METHOTREXATE
     Indication: ADENOCARCINOMA
     Dosage: UNK
     Route: 065
     Dates: start: 200711
  23. MITOMYCIN. [Suspect]
     Active Substance: MITOMYCIN
     Dosage: UNK
     Route: 042
  24. NAVELBINE [Suspect]
     Active Substance: VINORELBINE TARTRATE
     Dosage: UNK
     Route: 042
  25. 5-FU [Suspect]
     Active Substance: FLUOROURACIL
     Dosage: UNK
     Route: 041
  26. RANDA [Suspect]
     Active Substance: CISPLATIN
     Dosage: UNK
     Route: 041
  27. RANDA [Suspect]
     Active Substance: CISPLATIN
     Dosage: UNK
     Route: 041
  28. RANDA [Suspect]
     Active Substance: CISPLATIN
     Dosage: UNK
     Route: 041
  29. FARMORUBICIN [Suspect]
     Active Substance: EPIRUBICIN HYDROCHLORIDE
     Dosage: UNK
     Route: 041
  30. FARMORUBICIN [Suspect]
     Active Substance: EPIRUBICIN HYDROCHLORIDE
     Dosage: UNK
     Route: 041
  31. TAXOL [Suspect]
     Active Substance: PACLITAXEL
     Dosage: UNK
     Route: 041
  32. NAVELBINE [Suspect]
     Active Substance: VINORELBINE TARTRATE
     Dosage: UNK
     Route: 042
  33. 5-FU [Suspect]
     Active Substance: FLUOROURACIL
     Dosage: UNK
     Route: 041
  34. 5-FU [Suspect]
     Active Substance: FLUOROURACIL
     Dosage: UNK
     Route: 041
  35. RANDA [Suspect]
     Active Substance: CISPLATIN
     Dosage: UNK
     Route: 041
  36. FARMORUBICIN [Suspect]
     Active Substance: EPIRUBICIN HYDROCHLORIDE
     Indication: ADENOCARCINOMA
     Dosage: UNK
     Route: 041
     Dates: start: 200412
  37. FARMORUBICIN [Suspect]
     Active Substance: EPIRUBICIN HYDROCHLORIDE
     Dosage: UNK
     Route: 041
  38. ENDOXAN [Suspect]
     Active Substance: CYCLOPHOSPHAMIDE
     Indication: ADENOCARCINOMA
     Dosage: UNK
     Route: 041
     Dates: start: 200412
  39. ENDOXAN [Suspect]
     Active Substance: CYCLOPHOSPHAMIDE
     Dosage: UNK
     Route: 041
  40. LEUPLIN [Suspect]
     Active Substance: LEUPROLIDE ACETATE
     Indication: ADENOCARCINOMA
     Dosage: UNK
     Route: 058
     Dates: start: 200901
  41. 5-FU [Suspect]
     Active Substance: FLUOROURACIL
     Dosage: UNK
     Route: 041
  42. 5-FU [Suspect]
     Active Substance: FLUOROURACIL
     Dosage: UNK
     Route: 041
     Dates: start: 200412
  43. 5-FU [Suspect]
     Active Substance: FLUOROURACIL
     Dosage: UNK
     Route: 041
  44. RANDA [Suspect]
     Active Substance: CISPLATIN
     Dosage: UNK
     Route: 041
  45. ENDOXAN [Suspect]
     Active Substance: CYCLOPHOSPHAMIDE
     Dosage: UNK
     Route: 041
  46. TAXOTERE [Suspect]
     Active Substance: DOCETAXEL
     Dosage: UNK
     Route: 041
  47. TAXOL [Suspect]
     Active Substance: PACLITAXEL
     Dosage: UNK
     Route: 041
  48. TAXOL [Suspect]
     Active Substance: PACLITAXEL
     Dosage: UNK
     Route: 041
  49. 5-FU [Suspect]
     Active Substance: FLUOROURACIL
     Dosage: UNK
     Route: 041
  50. TAXOTERE [Suspect]
     Active Substance: DOCETAXEL
     Dosage: UNK
     Route: 041
  51. TAXOL [Suspect]
     Active Substance: PACLITAXEL
     Dosage: UNK
     Route: 041
  52. TAXOL [Suspect]
     Active Substance: PACLITAXEL
     Dosage: UNK
     Route: 041
  53. TAXOL [Suspect]
     Active Substance: PACLITAXEL
     Dosage: UNK
     Route: 041
  54. NAVELBINE [Suspect]
     Active Substance: VINORELBINE TARTRATE
     Dosage: UNK
     Route: 042
  55. 5-FU [Suspect]
     Active Substance: FLUOROURACIL
     Indication: ADENOCARCINOMA
     Dosage: UNK
     Route: 041
     Dates: start: 200403
  56. 5-FU [Suspect]
     Active Substance: FLUOROURACIL
     Dosage: UNK
     Route: 041
  57. ENDOXAN [Suspect]
     Active Substance: CYCLOPHOSPHAMIDE
     Dosage: UNK
     Route: 041
  58. TAXOTERE [Suspect]
     Active Substance: DOCETAXEL
     Indication: ADENOCARCINOMA
     Dosage: UNK
     Route: 041
     Dates: start: 200505
  59. TAXOL [Suspect]
     Active Substance: PACLITAXEL
     Dosage: UNK
     Route: 041
  60. TAXOL [Suspect]
     Active Substance: PACLITAXEL
     Dosage: UNK
     Route: 041

REACTIONS (1)
  - Cardiomyopathy [Fatal]
